FAERS Safety Report 22959736 (Version 5)
Quarter: 2024Q2

REPORT INFORMATION
  Report Type: Spontaneous
  Country: US (occurrence: US)
  Receive Date: 20230920
  Receipt Date: 20240522
  Transmission Date: 20240716
  Serious: No
  Sender: FDA-Public Use
  Company Number: US-SA-SAC20230913000496

PATIENT
  Age: 5 Year
  Sex: Male

DRUGS (2)
  1. DUPIXENT [Suspect]
     Active Substance: DUPILUMAB
     Indication: Eczema
     Dosage: 300 MG, Q4W
     Route: 058
     Dates: start: 20230827
  2. DUPIXENT [Suspect]
     Active Substance: DUPILUMAB
     Indication: Dermatitis atopic

REACTIONS (12)
  - Sleep disorder due to a general medical condition [Unknown]
  - Mood altered [Unknown]
  - Dry skin [Recovering/Resolving]
  - Erythema [Unknown]
  - Pruritus [Recovering/Resolving]
  - Eczema [Unknown]
  - Eye pruritus [Unknown]
  - Dry eye [Unknown]
  - Condition aggravated [Unknown]
  - Dermatitis atopic [Recovering/Resolving]
  - Product dose omission in error [Unknown]
  - Therapeutic response decreased [Unknown]

NARRATIVE: CASE EVENT DATE: 20230101
